FAERS Safety Report 9011348 (Version 4)
Quarter: 2013Q2

REPORT INFORMATION
  Report Type: Report from Study
  Country: JP (occurrence: JP)
  Receive Date: 20130108
  Receipt Date: 20130626
  Transmission Date: 20140414
  Serious: Yes (Death)
  Sender: FDA-Public Use
  Company Number: JP-OTSUKA-JP-2013-10002

PATIENT
  Age: 81 Year
  Sex: Female

DRUGS (6)
  1. SAMSCA [Suspect]
     Indication: FLUID RETENTION
     Dosage: 7.5 MG MILLIGRAM(S), QAM
     Route: 048
     Dates: start: 20121121, end: 20121130
  2. LASIX [Suspect]
     Indication: CARDIAC FAILURE
     Dosage: 80 MG MILLIGRAM(S), DAILY DOSE
     Route: 042
     Dates: end: 20121130
  3. INOVAN [Concomitant]
     Indication: CARDIAC FAILURE
     Dosage: 3 MCG/KG/MIN
     Route: 042
     Dates: end: 20121120
  4. MILRILA [Concomitant]
     Indication: CARDIAC FAILURE
     Dosage: 0.25 MCG/KG/MIN
     Route: 042
     Dates: end: 20121130
  5. DOBUTAMINE [Concomitant]
     Indication: CARDIAC FAILURE
     Dosage: 5 MCG/KG/MIN
     Route: 042
     Dates: end: 20121130
  6. HANP [Concomitant]
     Indication: CARDIAC FAILURE
     Dosage: 0.025 MCG/KG/MIN
     Route: 042
     Dates: end: 20121130

REACTIONS (2)
  - Thirst [Unknown]
  - Cardiac failure [Fatal]
